FAERS Safety Report 7680061-7 (Version None)
Quarter: 2011Q3

REPORT INFORMATION
  Report Type: 
  Country: None (occurrence: None)
  Receive Date: 20110805
  Receipt Date: 20110726
  Transmission Date: 20111222
  Serious: Yes (Hospitalization)
  Sender: FDA-Public Use
  Company Number: DSA_47085_2011

PATIENT
  Sex: Female

DRUGS (8)
  1. PAXIL [Concomitant]
  2. PREVACID [Concomitant]
  3. XENAZINE [Suspect]
     Indication: TARDIVE DYSKINESIA
     Dosage: (12.5 MG TID ORAL)
     Route: 048
     Dates: start: 20110525
  4. SEROQUEL [Concomitant]
  5. HUMIRA [Concomitant]
  6. CALCIUM W/MINERALS/VITAMIN D NOS [Concomitant]
  7. ARICEPT [Concomitant]
  8. TYLENOL REGULAR [Concomitant]

REACTIONS (14)
  - CARDIAC FLUTTER [None]
  - HYPOPHAGIA [None]
  - CARDIAC ARREST [None]
  - OESOPHAGEAL PERFORATION [None]
  - PALPITATIONS [None]
  - FATIGUE [None]
  - DYSPHAGIA [None]
  - COUGH [None]
  - DYSPNOEA [None]
  - DIVERTICULUM INTESTINAL HAEMORRHAGIC [None]
  - ANXIETY [None]
  - MUSCULAR WEAKNESS [None]
  - PROCEDURAL COMPLICATION [None]
  - MUSCULOSKELETAL STIFFNESS [None]
